FAERS Safety Report 5015152-2 (Version None)
Quarter: 2006Q2

REPORT INFORMATION
  Report Type: 
  Country: None (occurrence: None)
  Receive Date: 20060530
  Receipt Date: 20060418
  Transmission Date: 20061013
  Serious: Yes (Hospitalization)
  Sender: FDA-Public Use
  Company Number: CIP06001174

PATIENT
  Age: 84 Year
  Sex: Female

DRUGS (4)
  1. ACTONEL [Suspect]
     Indication: OSTEOPOROSIS
     Dosage: 2.5 MG DAILY, ORAL
     Route: 048
     Dates: start: 20040921, end: 20051220
  2. VIT K CAP [Concomitant]
  3. CALCIUM CARBONATE (CALCIUM CARBONATE) [Concomitant]
  4. SODIUM BICARBONATE IN PLASTIC CONTAINER [Concomitant]

REACTIONS (6)
  - AGEUSIA [None]
  - DECREASED APPETITE [None]
  - DYSGEUSIA [None]
  - EATING DISORDER [None]
  - ORAL INTAKE REDUCED [None]
  - VESICAL FISTULA [None]
